FAERS Safety Report 24060999 (Version 1)
Quarter: 2024Q3

REPORT INFORMATION
  Report Type: Spontaneous
  Country: GB (occurrence: GB)
  Receive Date: 20240708
  Receipt Date: 20240708
  Transmission Date: 20241017
  Serious: Yes (Other)
  Sender: TEVA
  Company Number: None

PATIENT
  Age: 61 Year
  Sex: Female

DRUGS (1)
  1. PACLITAXEL [Suspect]
     Active Substance: PACLITAXEL
     Indication: Adverse drug reaction
     Dosage: UNKNOWN
     Route: 065

REACTIONS (2)
  - Neuropathy peripheral [Unknown]
  - Fatigue [Unknown]

NARRATIVE: CASE EVENT DATE: 20231229
